FAERS Safety Report 6531629-2 (Version None)
Quarter: 2010Q1

REPORT INFORMATION
  Report Type: 
  Country: None (occurrence: None)
  Receive Date: 20100107
  Receipt Date: 20100107
  Transmission Date: 20100710
  Serious: Yes (Hospitalization)
  Sender: FDA-Public Use
  Company Number: None

PATIENT
  Age: 62 Year
  Sex: Male

DRUGS (5)
  1. DOXAZOSIN MESYLATE [Suspect]
     Dates: start: 20091007
  2. QUETIAPINE [Suspect]
  3. DICYCLOMINE [Suspect]
  4. CLONAZEPAM [Suspect]
  5. TAMSULOSIN HCL [Suspect]

REACTIONS (2)
  - FALL [None]
  - SYNCOPE [None]
